FAERS Safety Report 9733989 (Version 1)
Quarter: 2013Q4

REPORT INFORMATION
  Report Type: Report from Study
  Country: DE (occurrence: DE)
  Receive Date: 20131205
  Receipt Date: 20131205
  Transmission Date: 20140711
  Serious: Yes (Hospitalization)
  Sender: FDA-Public Use
  Company Number: CHNY2013DE002751

PATIENT
  Age: 64 Year
  Sex: Female
  Weight: 80 kg

DRUGS (4)
  1. NICOTINELL TTS [Suspect]
     Dosage: 28 MG, UNK
     Route: 062
     Dates: start: 20130223
  2. NICOTINELL TTS [Suspect]
     Dosage: 21 MG, UNK
     Route: 062
     Dates: start: 20130201
  3. NICOTINELL TTS [Suspect]
     Dosage: 14 MG, UNK
     Route: 062
     Dates: start: 20121229
  4. NICOTINELL TTS [Suspect]
     Dosage: 7 MG, UNK
     Route: 062
     Dates: start: 20121207

REACTIONS (2)
  - Tachycardia [Recovered/Resolved]
  - Anxiety [Recovered/Resolved]
